FAERS Safety Report 21036309 (Version 3)
Quarter: 2022Q3

REPORT INFORMATION
  Report Type: Spontaneous
  Country: US (occurrence: US)
  Receive Date: 20220701
  Receipt Date: 20220805
  Transmission Date: 20221026
  Serious: Yes (Hospitalization)
  Sender: FDA-Public Use
  Company Number: US-MALLINCKRODT-T202203305

PATIENT
  Sex: Male

DRUGS (4)
  1. H.P. ACTHAR [Suspect]
     Active Substance: CORTICOTROPIN
     Indication: Infantile spasms
     Dosage: 0.4 MILLILITER, BID FOR 14 DAYS
     Route: 030
     Dates: start: 20220606, end: 202206
  2. H.P. ACTHAR [Suspect]
     Active Substance: CORTICOTROPIN
     Dosage: 0.25 MILLILITER, BID FOR DAYS 15 TO 17
     Route: 030
     Dates: start: 202206, end: 202206
  3. H.P. ACTHAR [Suspect]
     Active Substance: CORTICOTROPIN
     Dosage: 0.25 MILLILITER, QD FOR DAYS 18 TO 20
     Route: 030
     Dates: start: 202206, end: 202206
  4. H.P. ACTHAR [Suspect]
     Active Substance: CORTICOTROPIN
     Dosage: 0.13 MILLILITER, QD FOR DAYS 21 TO 24
     Route: 030
     Dates: start: 202206, end: 20220711

REACTIONS (7)
  - Hospitalisation [Unknown]
  - Varicella [Recovered/Resolved]
  - Hyperphagia [Not Recovered/Not Resolved]
  - Injection site haemorrhage [Not Recovered/Not Resolved]
  - Liquid product physical issue [Unknown]
  - Product use issue [Unknown]
  - Wrong technique in product usage process [Unknown]

NARRATIVE: CASE EVENT DATE: 20220101
